FAERS Safety Report 18175419 (Version 2)
Quarter: 2022Q1

REPORT INFORMATION
  Report Type: Report from Study
  Country: CN (occurrence: CN)
  Receive Date: 20200820
  Receipt Date: 20220112
  Transmission Date: 20220423
  Serious: Yes (Hospitalization, Other)
  Sender: FDA-Public Use
  Company Number: CN-GLAXOSMITHKLINE-CN2020GSK082808

PATIENT
  Age: 55 Year
  Sex: Female

DRUGS (16)
  1. BELANTAMAB MAFODOTIN [Suspect]
     Active Substance: BELANTAMAB MAFODOTIN
     Indication: Plasma cell myeloma
     Dosage: 2.5 MG/KG, CYC
     Route: 042
     Dates: start: 20200506
  2. FUROSEMIDE [Concomitant]
     Active Substance: FUROSEMIDE
     Dosage: 20 MG, 1D
     Route: 048
     Dates: start: 20200514, end: 20200517
  3. FUROSEMIDE [Concomitant]
     Active Substance: FUROSEMIDE
     Dosage: 20 UNK
     Route: 048
     Dates: start: 20200513, end: 20200513
  4. SPIRONOLACTONE [Concomitant]
     Active Substance: SPIRONOLACTONE
     Dosage: 20 MG, BID
     Route: 048
     Dates: start: 20200513, end: 20200516
  5. SPIRONOLACTONE [Concomitant]
     Active Substance: SPIRONOLACTONE
     Dosage: 20 MG, 1D
     Route: 048
     Dates: start: 20200516, end: 20200517
  6. SODIUM BICARBONATE [Concomitant]
     Active Substance: SODIUM BICARBONATE
     Dosage: 125 ML, BID
     Route: 042
     Dates: start: 20200513, end: 20200514
  7. SODIUM BICARBONATE [Concomitant]
     Active Substance: SODIUM BICARBONATE
     Dosage: 125 ML, 1D
     Route: 042
     Dates: start: 20200514, end: 20200517
  8. POTASSIUM CITRATE ORAL SOLUTION [Concomitant]
     Dosage: 10 ML, SINGLE
     Route: 048
     Dates: start: 20200514, end: 20200514
  9. POTASSIUM CHLORIDE SUSTAINED RELEASE TABLETS [Concomitant]
     Dosage: 1 G, TID
     Route: 048
     Dates: start: 20200513, end: 20200517
  10. PANTOPRAZOLE SODIUM [Concomitant]
     Active Substance: PANTOPRAZOLE SODIUM
     Dosage: 40 MG, 1D
     Route: 042
     Dates: start: 20200513, end: 20200517
  11. ETAMSYLATE INJECTION [Concomitant]
     Dosage: 2 G, 1D
     Route: 042
     Dates: start: 20200512, end: 20200517
  12. CARBAZOCHROME SODIUM SULFONATE [Concomitant]
     Active Substance: CARBAZOCHROME SODIUM SULFONATE
     Dosage: 80 MG, 1D
     Route: 042
     Dates: start: 20200512, end: 20200517
  13. MOXIFLOXACIN [Concomitant]
     Active Substance: MOXIFLOXACIN
     Dosage: 0.40 G, 1D
     Route: 042
     Dates: start: 20200512, end: 20200517
  14. SODIUM BICARBONATE TABLETS [Concomitant]
     Dosage: 5 G, 1D
     Route: 042
     Dates: start: 20200512, end: 20200517
  15. SODIUM BICARBONATE TABLETS [Concomitant]
     Dosage: 50 G
     Route: 048
     Dates: start: 20200512, end: 20200512
  16. SODIUM ACETATE RINGER^S INJECTION [Concomitant]
     Dosage: 300 UG, SINGLE
     Route: 042
     Dates: start: 20200512, end: 20200512

REACTIONS (1)
  - Myelosuppression [Recovered/Resolved]

NARRATIVE: CASE EVENT DATE: 20200509
